FAERS Safety Report 5861217-2 (Version None)
Quarter: 2008Q3

REPORT INFORMATION
  Report Type: 
  Country: None (occurrence: None)
  Receive Date: 20080827
  Receipt Date: 20080418
  Transmission Date: 20090109
  Serious: No
  Sender: FDA-Public Use
  Company Number: US-ABBOTT-08P-163-0443684-00

PATIENT
  Age: 78 Year
  Sex: Male
  Weight: 72.64 kg

DRUGS (5)
  1. COATED PDS [Suspect]
     Indication: HIGH DENSITY LIPOPROTEIN DECREASED
     Dosage: COATED
     Route: 048
     Dates: start: 20071201
  2. COATED PDS [Suspect]
     Dosage: COATED
     Route: 048
     Dates: start: 20070101, end: 20071201
  3. COATED PDS [Suspect]
     Dosage: UNCOATED
     Route: 048
     Dates: start: 20050101, end: 20070101
  4. ACETYLSALICYLIC ACID SRT [Concomitant]
     Indication: FLUSHING
     Route: 048
     Dates: start: 20050101
  5. ACETYLSALICYLIC ACID SRT [Concomitant]
     Indication: PROPHYLAXIS

REACTIONS (1)
  - FLUSHING [None]
